FAERS Safety Report 9924102 (Version 1)
Quarter: 2014Q1

REPORT INFORMATION
  Report Type: Spontaneous
  Country: US (occurrence: US)
  Receive Date: 20140226
  Receipt Date: 20140226
  Transmission Date: 20141002
  Serious: No
  Sender: FDA-Public Use
  Company Number: US-009507513-1402USA011448

PATIENT
  Sex: Female

DRUGS (3)
  1. JANUVIA [Suspect]
     Indication: TYPE 2 DIABETES MELLITUS
     Dosage: 100 MG, QAM
     Route: 048
     Dates: end: 2013
  2. JANUVIA [Suspect]
     Dosage: 100 MG, QAM
     Route: 048
  3. ATENOLOL [Concomitant]

REACTIONS (6)
  - Glycosylated haemoglobin increased [Not Recovered/Not Resolved]
  - Feeling abnormal [Unknown]
  - Glycosylated haemoglobin increased [Unknown]
  - Dysphagia [Unknown]
  - Product taste abnormal [Unknown]
  - Dysgeusia [Unknown]
